FAERS Safety Report 5960767-8 (Version None)
Quarter: 2008Q4

REPORT INFORMATION
  Report Type: 
  Country: None (occurrence: None)
  Receive Date: 20081120
  Receipt Date: 20081110
  Transmission Date: 20090506
  Serious: Yes (Death)
  Sender: FDA-Public Use
  Company Number: JP-PFIZER INC-2008096455

PATIENT
  Age: 58 Year
  Sex: Female

DRUGS (2)
  1. IRINOTECAN HCL [Suspect]
     Indication: OVARIAN CANCER
     Dates: start: 20051201
  2. DOCETAXEL [Suspect]
     Indication: OVARIAN CANCER
     Dates: start: 20051201

REACTIONS (3)
  - LEUKAEMIA [None]
  - MYELODYSPLASTIC SYNDROME [None]
  - NEOPLASM MALIGNANT [None]
